FAERS Safety Report 6818740-3 (Version None)
Quarter: 2010Q3

REPORT INFORMATION
  Report Type: 
  Country: None (occurrence: None)
  Receive Date: 20100706
  Receipt Date: 20100628
  Transmission Date: 20110219
  Serious: Yes (Other)
  Sender: FDA-Public Use
  Company Number: US-AMGEN-QUU420917

PATIENT
  Sex: Female

DRUGS (1)
  1. ENBREL [Suspect]
     Indication: RHEUMATOID ARTHRITIS
     Route: 058
     Dates: start: 20080508

REACTIONS (7)
  - ALOPECIA [None]
  - CHILLS [None]
  - DIARRHOEA [None]
  - FATIGUE [None]
  - HYPERTENSION [None]
  - PYREXIA [None]
  - THYROID NEOPLASM [None]
